FAERS Safety Report 7632036-1 (Version None)
Quarter: 2011Q3

REPORT INFORMATION
  Report Type: 
  Country: None (occurrence: None)
  Receive Date: 20110725
  Receipt Date: 20100603
  Transmission Date: 20111222
  Serious: Yes (Other)
  Sender: FDA-Public Use
  Company Number: US-BRISTOL-MYERS SQUIBB COMPANY-15134414

PATIENT
  Age: 63 Year
  Sex: Male
  Weight: 79 kg

DRUGS (13)
  1. TOPAMAX [Concomitant]
  2. VERAMYST [Concomitant]
     Dosage: VERAMYST SPRAY
  3. BYSTOLIC [Concomitant]
  4. SERTRALINE HYDROCHLORIDE [Concomitant]
  5. BENAZEPRIL HYDROCHLORIDE [Concomitant]
  6. FISH OIL [Concomitant]
  7. COUMADIN [Suspect]
     Indication: ATRIAL FIBRILLATION
     Dosage: 1DF- 5MG 5D/WK ALTERNATING WITH 7.5MG 2D/WK;  DOSE INCREASED TO 7.5MG 7D/WK; DECREASED TO 7.5MG QD
     Dates: start: 20100301
  8. CALCIUM CITRATE [Concomitant]
  9. VYTORIN [Concomitant]
     Dosage: 1DF- 10/40 QD INITIATED TWO YEARS AGO
  10. ZEGERID [Concomitant]
  11. IBUPROFEN [Concomitant]
  12. VITAMIN D [Concomitant]
  13. MULTI-VITAMIN [Concomitant]
     Dosage: WITHOUT VITAMIN K QD

REACTIONS (1)
  - INTERNATIONAL NORMALISED RATIO DECREASED [None]
